FAERS Safety Report 5521773-0 (Version None)
Quarter: 2007Q4

REPORT INFORMATION
  Report Type: 
  Country: None (occurrence: None)
  Receive Date: 20071120
  Receipt Date: 20071112
  Transmission Date: 20080405
  Serious: Yes (Hospitalization, Disabling)
  Sender: FDA-Public Use
  Company Number: AT-JNJFOC-20071104643

PATIENT
  Age: 25 Year
  Sex: Female
  Weight: 65 kg

DRUGS (6)
  1. INFLIXIMAB [Suspect]
     Indication: RHEUMATOID ARTHRITIS
     Route: 042
  2. METHOTREXATE [Concomitant]
     Indication: RHEUMATOID ARTHRITIS
     Route: 048
  3. FOLIC ACID [Concomitant]
     Indication: PROPHYLAXIS
     Route: 048
  4. RESOCHIN [Concomitant]
     Indication: RHEUMATOID ARTHRITIS
     Route: 048
  5. MISOPROSTOL [Concomitant]
     Indication: PAIN
     Route: 048
  6. TRAMADOL HCL [Concomitant]

REACTIONS (2)
  - SUDDEN HEARING LOSS [None]
  - TINNITUS [None]
